FAERS Safety Report 4756312-5 (Version None)
Quarter: 2005Q3

REPORT INFORMATION
  Report Type: 
  Country: None (occurrence: None)
  Receive Date: 20050830
  Receipt Date: 20050526
  Transmission Date: 20060218
  Serious: Yes (Hospitalization, Other)
  Sender: FDA-Public Use
  Company Number: US-GLAXOSMITHKLINE-A0560292A

PATIENT
  Age: 40 Year
  Sex: Male

DRUGS (6)
  1. WELLBUTRIN [Suspect]
     Dosage: 300MG PER DAY
     Route: 048
     Dates: start: 20030101, end: 20050516
  2. AMITRIPTYLINE HCL [Concomitant]
     Indication: DEPRESSION
     Dates: end: 20050516
  3. ALBENZA [Concomitant]
  4. OXYCODONE [Concomitant]
  5. CLARITIN [Concomitant]
  6. MUSCLE RELAXANT [Concomitant]

REACTIONS (1)
  - CONVULSION [None]
